FAERS Safety Report 24441709 (Version 1)
Quarter: 2024Q4

REPORT INFORMATION
  Report Type: Spontaneous
  Country: US (occurrence: US)
  Receive Date: 20241016
  Receipt Date: 20241016
  Transmission Date: 20250115
  Serious: Yes (Hospitalization)
  Sender: ACCORD
  Company Number: US-PFIZER INC-PV202300164191

PATIENT
  Age: 59 Year
  Sex: Male

DRUGS (6)
  1. TACROLIMUS [Interacting]
     Active Substance: TACROLIMUS
     Indication: Immunosuppressant drug therapy
     Dates: start: 2017, end: 2022
  2. NIRMATRELVIR [Interacting]
     Active Substance: NIRMATRELVIR
     Indication: COVID-19
     Dates: start: 2022, end: 2022
  3. RITONAVIR [Interacting]
     Active Substance: RITONAVIR
     Indication: COVID-19
     Dates: start: 2022, end: 2022
  4. MYCOPHENOLIC ACID [Concomitant]
     Active Substance: MYCOPHENOLIC ACID
     Indication: Immunosuppressant drug therapy
     Dates: start: 2017
  5. PREDNISONE [Concomitant]
     Active Substance: PREDNISONE
     Indication: Immunosuppressant drug therapy
     Dates: start: 2017
  6. WARFARIN [Concomitant]
     Active Substance: WARFARIN
     Indication: Product used for unknown indication

REACTIONS (8)
  - Gastrointestinal injury [Recovering/Resolving]
  - Escherichia bacteraemia [Recovering/Resolving]
  - Toxicity to various agents [Recovered/Resolved]
  - Escherichia sepsis [Recovering/Resolving]
  - Intestinal barrier dysfunction [Recovering/Resolving]
  - Acute kidney injury [Recovered/Resolved]
  - Bacterial translocation [Recovering/Resolving]
  - Drug interaction [Recovered/Resolved]

NARRATIVE: CASE EVENT DATE: 20220101
